FAERS Safety Report 8456039 (Version 3)
Quarter: 2013Q3

REPORT INFORMATION
  Report Type: Report from Study
  Country: BE (occurrence: BE)
  Receive Date: 20120313
  Receipt Date: 20130810
  Transmission Date: 20140515
  Serious: Yes (Death)
  Sender: FDA-Public Use
  Company Number: BE-ROCHE-1044716

PATIENT
  Age: 66 Year
  Sex: Female
  Weight: 65 kg

DRUGS (7)
  1. OSELTAMIVIR [Suspect]
     Indication: INFLUENZA
     Route: 042
     Dates: start: 20120216, end: 20120218
  2. HEPARIN SODIUM [Suspect]
     Indication: EXTRACORPOREAL MEMBRANE OXYGENATION
     Route: 042
     Dates: start: 20120217, end: 20120218
  3. DOBUTAMINE [Concomitant]
     Indication: CARDIOGENIC SHOCK
     Route: 042
     Dates: start: 20120215, end: 20120218
  4. NORADRENALINE [Concomitant]
     Indication: SHOCK
     Route: 042
     Dates: start: 20120215, end: 20120218
  5. AMOXICILLINE [Concomitant]
     Indication: PNEUMONIA
     Route: 042
     Dates: start: 20120215, end: 20120218
  6. SODIUM BICARBONATE [Concomitant]
     Route: 042
     Dates: start: 20120215, end: 20120218
  7. CLAVULANIC ACID [Concomitant]
     Route: 065
     Dates: start: 20120215, end: 20120218

REACTIONS (2)
  - Shock haemorrhagic [Fatal]
  - Disseminated intravascular coagulation [Fatal]
